FAERS Safety Report 11967905 (Version 1)
Quarter: 2016Q1

REPORT INFORMATION
  Report Type: Report from Study
  Country: US (occurrence: US)
  Receive Date: 20160127
  Receipt Date: 20160127
  Transmission Date: 20160526
  Serious: No
  Sender: FDA-Public Use
  Company Number: US-ABBVIE-15K-163-1386549-00

PATIENT
  Age: 49 Year
  Sex: Female

DRUGS (3)
  1. HUMIRA [Suspect]
     Active Substance: ADALIMUMAB
     Route: 065
     Dates: start: 20150417, end: 20150417
  2. HUMIRA [Suspect]
     Active Substance: ADALIMUMAB
     Route: 065
     Dates: end: 20150524
  3. HUMIRA [Suspect]
     Active Substance: ADALIMUMAB
     Indication: CROHN^S DISEASE
     Route: 065
     Dates: start: 20150402, end: 20150402

REACTIONS (14)
  - Dyskinesia [Recovered/Resolved]
  - Swollen tongue [Recovered/Resolved]
  - Inappropriate schedule of drug administration [Unknown]
  - Oral mucosal blistering [Recovered/Resolved]
  - Swollen tongue [Recovered/Resolved]
  - Oral pain [Not Recovered/Not Resolved]
  - Glossodynia [Not Recovered/Not Resolved]
  - Flushing [Not Recovered/Not Resolved]
  - Toothache [Not Recovered/Not Resolved]
  - Oral discomfort [Recovered/Resolved]
  - Tongue discolouration [Not Recovered/Not Resolved]
  - Rash [Recovered/Resolved]
  - Oral discomfort [Recovered/Resolved]
  - Tongue blistering [Recovered/Resolved]

NARRATIVE: CASE EVENT DATE: 20150417
